FAERS Safety Report 8883064 (Version 1)
Quarter: 2012Q4

REPORT INFORMATION
  Report Type: 
  Country: US (occurrence: US)
  Receive Date: 20121102
  Receipt Date: 20121102
  Transmission Date: 20130627
  Serious: No
  Sender: FDA-Public Use
  Company Number: US-ABBOTT-12P-163-0933009-00

PATIENT
  Sex: Male
  Weight: 61.29 kg

DRUGS (2)
  1. BIAXIN [Suspect]
     Indication: NASOPHARYNGITIS
  2. ADVIL [Concomitant]
     Indication: PRODUCT USED FOR UNKNOWN INDICATION

REACTIONS (2)
  - Dysgeusia [Recovering/Resolving]
  - Ageusia [Recovering/Resolving]
